FAERS Safety Report 5094671-7 (Version None)
Quarter: 2006Q3

REPORT INFORMATION
  Report Type: 
  Country: None (occurrence: None)
  Receive Date: 20060731
  Receipt Date: 20060420
  Transmission Date: 20061208
  Serious: No
  Sender: FDA-Public Use
  Company Number: 2006PV012438

PATIENT
  Age: 56 Year
  Sex: Female
  Weight: 79.3795 kg

DRUGS (9)
  1. BYETTA [Suspect]
     Indication: DIABETES MELLITUS NON-INSULIN-DEPENDENT
     Dosage: 5 MCG; BID; SC
     Route: 058
     Dates: start: 20060404
  2. FERROUS SULFATE TAB [Concomitant]
  3. NEXIUM [Concomitant]
  4. LISINOPRIL [Concomitant]
  5. VYTORIN [Concomitant]
  6. AVANDIA [Concomitant]
  7. GLUCOVANCE [Concomitant]
  8. ASPIRIN [Concomitant]
  9. ESTRADIOL INJ [Concomitant]

REACTIONS (3)
  - BREAST DISCOMFORT [None]
  - BREAST TENDERNESS [None]
  - HOT FLUSH [None]
